FAERS Safety Report 6152876-8 (Version None)
Quarter: 2009Q2

REPORT INFORMATION
  Report Type: 
  Country: None (occurrence: None)
  Receive Date: 20090413
  Receipt Date: 20090408
  Transmission Date: 20091009
  Serious: Yes (Life-Threatening)
  Sender: FDA-Public Use
  Company Number: PHHY2008JP28358

PATIENT
  Sex: Female
  Weight: 54 kg

DRUGS (39)
  1. DIOVAN [Suspect]
     Indication: HYPERTENSION
     Dosage: 80 MG, QD
     Route: 048
     Dates: start: 20080903, end: 20080928
  2. DIOVAN [Suspect]
     Dosage: 160 MG, QD
     Route: 048
     Dates: start: 20080929, end: 20081020
  3. LOSARTAN POTASSIUM [Concomitant]
     Indication: HYPERTENSION
     Dosage: 1 DF
     Route: 048
     Dates: start: 20080619, end: 20080827
  4. LONGES [Concomitant]
     Indication: HYPERTENSION
     Dosage: 10 MG
     Dates: start: 20080619
  5. ADALAT CC [Concomitant]
     Indication: HYPERTENSION
     Dosage: 20 MG
     Route: 048
     Dates: start: 20080825, end: 20080902
  6. ARTIST [Concomitant]
     Dosage: 10 MG
     Route: 048
     Dates: start: 20080825, end: 20080925
  7. MERCAZOLE [Concomitant]
     Dosage: 10 MG
     Route: 048
  8. ZANTAC [Concomitant]
     Dosage: 150 MG
     Route: 048
     Dates: start: 20080801, end: 20080827
  9. PAXIL [Concomitant]
     Dosage: 30 MG
     Route: 048
  10. LASIX [Concomitant]
     Dosage: 20 MG
     Route: 048
     Dates: start: 20080825, end: 20080827
  11. GASTER D [Concomitant]
     Dosage: 20 MG
     Route: 048
     Dates: start: 20080825, end: 20080904
  12. FLOMOX [Concomitant]
     Dosage: 300 MG
     Route: 048
     Dates: start: 20080825, end: 20080828
  13. BIOFERMIN R [Concomitant]
     Dosage: 3 G
     Route: 048
     Dates: start: 20080825, end: 20080828
  14. MAGLAX [Concomitant]
     Dosage: 990 MG
     Route: 048
     Dates: start: 20080825, end: 20080901
  15. MYSLEE [Concomitant]
     Dosage: 5 MG
     Route: 048
     Dates: start: 20080825
  16. FLUITRAN [Concomitant]
     Dosage: 2 MG
     Route: 048
     Dates: start: 20080929, end: 20081016
  17. SOLU-CORTEF [Concomitant]
     Dosage: 300 MG
     Route: 042
     Dates: start: 20080925
  18. SOLU-CORTEF [Concomitant]
     Dosage: 100 MG
     Route: 042
  19. SOLU-CORTEF [Concomitant]
     Dosage: 200 MG
     Route: 042
  20. SOLU-CORTEF [Concomitant]
     Dosage: 2000 MG
     Route: 042
     Dates: end: 20081022
  21. BOSMIN [Concomitant]
     Dosage: 1 MG
     Route: 030
     Dates: start: 20080925, end: 20080925
  22. CEFAMEZIN ^FUJISAWA^ [Concomitant]
     Dosage: 4 G
     Route: 042
     Dates: start: 20081022, end: 20081024
  23. CEFAMEZIN ^FUJISAWA^ [Concomitant]
     Dosage: 2 G
     Route: 042
     Dates: start: 20081022, end: 20081024
  24. SENIRAN [Concomitant]
     Dosage: 15 MG
     Route: 048
     Dates: start: 20080826
  25. TAKEPRON [Concomitant]
     Dosage: 15 MG
     Route: 048
     Dates: start: 20080905, end: 20080925
  26. FERRO-GRADUMET                          /AUS/ [Concomitant]
     Dosage: 105 MG
     Route: 048
     Dates: start: 20080909, end: 20081016
  27. DASEN [Concomitant]
     Dosage: 30 MG
     Route: 048
     Dates: start: 20080911, end: 20081027
  28. PARIET [Concomitant]
     Dosage: 10 MG
     Route: 048
     Dates: start: 20080922
  29. PARIET [Concomitant]
     Dosage: 20 MG
     Route: 048
  30. NORVASC [Concomitant]
     Dosage: 5 MG
     Route: 048
     Dates: start: 20080926, end: 20080929
  31. CLARITH [Concomitant]
     Dosage: 800 MG
     Route: 048
     Dates: start: 20080927, end: 20081019
  32. THYRADIN S [Concomitant]
     Dosage: 25 MICROGRAM
     Route: 048
     Dates: start: 20081001
  33. GASMOTIN [Concomitant]
     Dosage: 15 MG
     Route: 048
     Dates: start: 20081008, end: 20081020
  34. NICARPINE [Concomitant]
     Dosage: 2 MG
     Route: 042
     Dates: start: 20081022, end: 20081022
  35. MAKYOUKANSEKITOU [Concomitant]
     Dosage: UNK
  36. PURSENNID                               /SCH/ [Concomitant]
     Dosage: 1 DF
     Route: 048
  37. MUCOSTA [Concomitant]
     Dosage: 1 DF
     Route: 048
  38. PRIMPERAN [Concomitant]
     Dosage: 1 DF
  39. RINDERON [Concomitant]
     Dosage: UNK
     Route: 025
     Dates: start: 20081021, end: 20081021

REACTIONS (5)
  - DYSPNOEA [None]
  - LARYNGEAL OEDEMA [None]
  - OTORHINOLARYNGOLOGICAL SURGERY [None]
  - PHARYNGEAL OEDEMA [None]
  - TRACHEOSTOMY [None]
